FAERS Safety Report 7647100-0 (Version None)
Quarter: 2011Q3

REPORT INFORMATION
  Report Type: 
  Country: None (occurrence: None)
  Receive Date: 20110729
  Receipt Date: 20110729
  Transmission Date: 20111222
  Serious: No
  Sender: FDA-Public Use
  Company Number: None

PATIENT
  Sex: Female
  Weight: 63.5036 kg

DRUGS (2)
  1. SULFACETAMIDE SODIUM [Suspect]
     Indication: EYE PRURITUS
     Dosage: 1 DROP EVERY 6 HRS
     Route: 047
     Dates: start: 20110614, end: 20110615
  2. TOBRAMYCIN [Suspect]
     Indication: EYE PRURITUS
     Dosage: 1 DROP EVERY 4 HRS
     Route: 047
     Dates: start: 20110612, end: 20110614

REACTIONS (4)
  - EYE HAEMORRHAGE [None]
  - MEDICATION ERROR [None]
  - EYE PRURITUS [None]
  - EYE IRRITATION [None]
